FAERS Safety Report 7373175-2 (Version None)
Quarter: 2011Q1

REPORT INFORMATION
  Report Type: 
  Country: None (occurrence: None)
  Receive Date: 20110324
  Receipt Date: 20110321
  Transmission Date: 20110831
  Serious: Yes (Hospitalization, Other)
  Sender: FDA-Public Use
  Company Number: CA-ABBOTT-11P-028-0707746-00

PATIENT
  Sex: Male
  Weight: 52.21 kg

DRUGS (8)
  1. VITAMIN B-12 [Concomitant]
     Indication: VITAMIN SUPPLEMENTATION
     Route: 048
     Dates: start: 20010101
  2. CALCIUM D [Concomitant]
     Indication: CROHN'S DISEASE
     Route: 048
     Dates: start: 20010101
  3. PANTOPRAZOLE [Concomitant]
     Indication: OESOPHAGEAL DISORDER
     Route: 048
     Dates: start: 20080101
  4. HUMIRA [Suspect]
     Indication: CROHN'S DISEASE
     Route: 058
     Dates: start: 20100114, end: 20100301
  5. HUMIRA [Suspect]
     Route: 058
     Dates: start: 20100301
  6. NOVO-LOPERAMIDE [Concomitant]
     Indication: CROHN'S DISEASE
     Route: 048
     Dates: start: 19820101
  7. PURINETHOL [Concomitant]
     Indication: CROHN'S DISEASE
     Route: 048
     Dates: start: 20100101
  8. METRONIDAZOLE [Concomitant]
     Indication: CROHN'S DISEASE
     Route: 048
     Dates: start: 20010101

REACTIONS (4)
  - FISTULA [None]
  - ANAL ABSCESS [None]
  - ANAL FISTULA [None]
  - CROHN'S DISEASE [None]
